FAERS Safety Report 9769411 (Version 1)
Quarter: 2013Q4

REPORT INFORMATION
  Report Type: Report from Study
  Country: IT (occurrence: IT)
  Receive Date: 20131218
  Receipt Date: 20131218
  Transmission Date: 20140711
  Serious: Yes (Life-Threatening)
  Sender: FDA-Public Use
  Company Number: PHHO2013IT016318

PATIENT
  Sex: 0

DRUGS (4)
  1. AMN107 [Suspect]
     Indication: CHRONIC MYELOID LEUKAEMIA
     Dosage: 600 MG, BID
     Route: 048
     Dates: start: 20120417, end: 20131209
  2. BISOPROLOL [Concomitant]
     Indication: HYPERTENSION
     Dosage: 1.25 UG, UNK
     Route: 048
     Dates: start: 20120315
  3. BLOPRESS [Concomitant]
     Indication: HYPERTENSION
     Dosage: 8.0 UG, UNK
     Route: 048
     Dates: start: 20120321
  4. RANITIDINE [Concomitant]
     Indication: GASTRITIS PROPHYLAXIS
     Dosage: 300 MG, UNK
     Route: 048
     Dates: start: 20120321

REACTIONS (1)
  - Coronary artery disease [Recovering/Resolving]
